FAERS Safety Report 14192235 (Version 1)
Quarter: 2017Q4

REPORT INFORMATION
  Report Type: Spontaneous
  Country: JP (occurrence: JP)
  Receive Date: 20171115
  Receipt Date: 20171115
  Transmission Date: 20180321
  Serious: Yes (Death, Hospitalization)
  Sender: FDA-Public Use
  Company Number: JP-MYLANLABS-2017M1071756

PATIENT
  Sex: Male

DRUGS (1)
  1. AZACITIDINE. [Suspect]
     Active Substance: AZACITIDINE
     Indication: ACUTE MYELOID LEUKAEMIA
     Route: 065

REACTIONS (6)
  - Haemorrhage intracranial [Not Recovered/Not Resolved]
  - Bacterial sepsis [Fatal]
  - Febrile neutropenia [Unknown]
  - Renal infarct [Not Recovered/Not Resolved]
  - Haemorrhagic infarction [Not Recovered/Not Resolved]
  - Bacillus infection [Fatal]
